FAERS Safety Report 25464287 (Version 1)
Quarter: 2025Q2

REPORT INFORMATION
  Report Type: Spontaneous
  Country: US (occurrence: US)
  Receive Date: 20250621
  Receipt Date: 20250621
  Transmission Date: 20250716
  Serious: No
  Sender: TOLMAR
  Company Number: CID000000000000166

PATIENT

DRUGS (3)
  1. ELIGARD [Suspect]
     Active Substance: LEUPROLIDE ACETATE
     Indication: Neoplasm prostate
     Route: 058
  2. ELIGARD [Suspect]
     Active Substance: LEUPROLIDE ACETATE
     Route: 058
  3. DEVICE [Suspect]
     Active Substance: DEVICE
     Indication: Neoplasm prostate
     Route: 065

REACTIONS (2)
  - Intercepted product administration error [Unknown]
  - Product packaging quantity issue [Unknown]
